FAERS Safety Report 11758694 (Version 1)
Quarter: 2015Q4

REPORT INFORMATION
  Report Type: Spontaneous
  Country: CA (occurrence: CA)
  Receive Date: 20151120
  Receipt Date: 20151120
  Transmission Date: 20160304
  Serious: Yes (Other)
  Sender: FDA-Public Use
  Company Number: CA-TEVA-611044ACC

PATIENT
  Age: 10 Year
  Sex: Female

DRUGS (1)
  1. CLONIDINE. [Suspect]
     Active Substance: CLONIDINE
     Indication: INSOMNIA
     Dosage: .2 MILLIGRAM DAILY;
     Route: 048

REACTIONS (4)
  - Activities of daily living impaired [Unknown]
  - Sedation [Unknown]
  - Sleep talking [Unknown]
  - Speech disorder [Unknown]
